FAERS Safety Report 8408138-9 (Version None)
Quarter: 2012Q2

REPORT INFORMATION
  Report Type: 
  Country: None (occurrence: None)
  Receive Date: 20120604
  Receipt Date: 20120521
  Transmission Date: 20120825
  Serious: No
  Sender: FDA-Public Use
  Company Number: US-ASTRAZENECA-2012SE32864

PATIENT
  Age: 53 Year
  Sex: Male

DRUGS (5)
  1. ZANTAC [Concomitant]
  2. PLAVIX [Interacting]
     Route: 065
  3. PRILOSEC [Interacting]
     Route: 048
  4. NEXIUM [Suspect]
     Route: 048
  5. COUMADIN [Concomitant]

REACTIONS (3)
  - DRUG INTERACTION [None]
  - WRONG DRUG ADMINISTERED [None]
  - DRUG INEFFECTIVE [None]
